FAERS Safety Report 4788436-0 (Version None)
Quarter: 2005Q3

REPORT INFORMATION
  Report Type: 
  Country: None (occurrence: None)
  Receive Date: 20050920
  Receipt Date: 20050810
  Transmission Date: 20060218
  Serious: Yes (Hospitalization)
  Sender: FDA-Public Use
  Company Number: 0205027

PATIENT
  Age: 45 Year
  Sex: Male
  Weight: 74.9 kg

DRUGS (8)
  1. DEPODUR ? (INJECTION) (MORPHINE SULFATE EXTENDED-RELEASE LIPOSOME INJE [Suspect]
     Indication: POSTOPERATIVE ANALGESIA
     Dosage: 15 MG ONCE EPIDURAL
     Route: 008
     Dates: start: 20050801, end: 20050801
  2. ZOLOFT [Concomitant]
  3. CLOZARIL [Concomitant]
  4. DEPAKOTE [Concomitant]
  5. COGENTIN [Concomitant]
  6. BENADRYL [Concomitant]
  7. FENTANYL [Concomitant]
  8. PERCOCET [Concomitant]

REACTIONS (6)
  - DELIRIUM [None]
  - GASTROINTESTINAL DISORDER [None]
  - HYPONATRAEMIA [None]
  - LETHARGY [None]
  - RESPIRATORY DEPRESSION [None]
  - SEDATION [None]
